FAERS Safety Report 16642558 (Version 3)
Quarter: 2019Q3

REPORT INFORMATION
  Report Type: Spontaneous
  Country: JP (occurrence: JP)
  Receive Date: 20190729
  Receipt Date: 20190815
  Transmission Date: 20191004
  Serious: Yes (Hospitalization)
  Sender: FDA-Public Use
  Company Number: JP-JNJFOC-20190734794

PATIENT
  Age: 49 Year
  Sex: Female
  Weight: 106 kg

DRUGS (4)
  1. REMICADE [Suspect]
     Active Substance: INFLIXIMAB
     Dosage: ALSO REPORTED AS 500 MILLIGRAM, ONCE A DAY
     Route: 042
     Dates: start: 20190413
  2. REMICADE [Suspect]
     Active Substance: INFLIXIMAB
     Dosage: ALSO REPORTED AS 10 MG/KG, ONCE A DAY
     Route: 042
     Dates: start: 20190608
  3. REMICADE [Suspect]
     Active Substance: INFLIXIMAB
     Route: 042
     Dates: start: 201804
  4. REMICADE [Suspect]
     Active Substance: INFLIXIMAB
     Indication: COLITIS ULCERATIVE
     Dosage: UNK
     Route: 042
     Dates: start: 2016

REACTIONS (1)
  - Pyoderma gangrenosum [Recovering/Resolving]

NARRATIVE: CASE EVENT DATE: 20190717
